FAERS Safety Report 26122267 (Version 1)
Quarter: 2025Q4

REPORT INFORMATION
  Report Type: Spontaneous
  Country: US (occurrence: US)
  Receive Date: 20251204
  Receipt Date: 20251204
  Transmission Date: 20260118
  Serious: No
  Sender: PFIZER
  Company Number: US-PFIZER INC-202500232581

PATIENT
  Age: 14 Year
  Sex: Male
  Weight: 48.53 kg

DRUGS (3)
  1. GENOTROPIN [Suspect]
     Active Substance: SOMATROPIN
     Indication: Short stature
     Dosage: 2.4MG INJECTION EVERY NIGHT
  2. GENOTROPIN [Suspect]
     Active Substance: SOMATROPIN
     Indication: Growth hormone deficiency
     Dosage: 1.6 MG, DAILY
  3. METHYLPHENIDATE [Concomitant]
     Active Substance: METHYLPHENIDATE
     Indication: Attention deficit hyperactivity disorder
     Dosage: 40MG ONCE A DAY (TAKING FOR ABOUT 4 YEARS)
     Route: 048

REACTIONS (3)
  - Device difficult to use [Unknown]
  - Device mechanical issue [Unknown]
  - Liquid product physical issue [Unknown]
